FAERS Safety Report 9498212 (Version 1)
Quarter: 2013Q3

REPORT INFORMATION
  Report Type: Spontaneous
  Country: US (occurrence: None)
  Receive Date: 20130903
  Receipt Date: 20130903
  Transmission Date: 20140515
  Serious: Yes (Hospitalization)
  Sender: FDA-Public Use
  Company Number: None

PATIENT
  Age: 65 Year
  Sex: Male
  Weight: 79.5 kg

DRUGS (2)
  1. PRADAXA [Suspect]
     Indication: CEREBROVASCULAR ACCIDENT PROPHYLAXIS
     Dates: start: 20120601, end: 20130611
  2. PRADAXA [Suspect]
     Indication: THROMBOSIS PROPHYLAXIS
     Dates: start: 20120601, end: 20130611

REACTIONS (4)
  - Fatigue [None]
  - Dyspnoea [None]
  - Nausea [None]
  - Gastrointestinal haemorrhage [None]
